FAERS Safety Report 7225425-0 (Version None)
Quarter: 2011Q1

REPORT INFORMATION
  Report Type: 
  Country: None (occurrence: None)
  Receive Date: 20110107
  Receipt Date: 20110107
  Transmission Date: 20110831
  Serious: Yes (Hospitalization)
  Sender: FDA-Public Use
  Company Number: None

PATIENT
  Age: 81 Year
  Sex: Female
  Weight: 55.3388 kg

DRUGS (2)
  1. ZETIA [Suspect]
     Indication: BLOOD CHOLESTEROL INCREASED
     Dosage: 10 MG TAB 1 DAILY - EVE
     Dates: start: 20020101, end: 20100814
  2. LIPITOR [Suspect]
     Indication: BLOOD CHOLESTEROL INCREASED
     Dosage: 80MG TAB 1 DAILY -- EVE
     Dates: start: 20020101, end: 20100814

REACTIONS (2)
  - ASTHENIA [None]
  - MOBILITY DECREASED [None]
